FAERS Safety Report 6840136-9 (Version None)
Quarter: 2010Q3

REPORT INFORMATION
  Report Type: 
  Country: None (occurrence: None)
  Receive Date: 20100709
  Receipt Date: 20100628
  Transmission Date: 20110219
  Serious: Yes (Hospitalization, Other)
  Sender: FDA-Public Use
  Company Number: 20108975

PATIENT
  Sex: Female

DRUGS (4)
  1. LIORESAL [Suspect]
     Indication: MUSCLE SPASTICITY
     Dosage: 1378.3 MCG, DAILY, INTRATHECAL
     Route: 037
  2. BUPIVACAINE HCL [Concomitant]
  3. HYDROMORPHONE [Concomitant]
  4. BACLOFEN [Concomitant]

REACTIONS (4)
  - COGNITIVE DISORDER [None]
  - OVERDOSE [None]
  - RESPIRATORY DISTRESS [None]
  - WITHDRAWAL SYNDROME [None]
